FAERS Safety Report 5600305-2 (Version None)
Quarter: 2008Q1

REPORT INFORMATION
  Report Type: 
  Country: None (occurrence: None)
  Receive Date: 20080123
  Receipt Date: 20080115
  Transmission Date: 20080703
  Serious: Yes (Hospitalization)
  Sender: FDA-Public Use
  Company Number: US-JNJFOC-20071007904

PATIENT
  Sex: Male
  Weight: 96.7 kg

DRUGS (11)
  1. DOXORUBICIN HCL [Suspect]
     Indication: MULTIPLE MYELOMA
     Dosage: GIVEN ON DAY 1, 15
     Route: 042
     Dates: start: 20070717, end: 20071016
  2. VELCADE [Suspect]
     Indication: MULTIPLE MYELOMA
     Dosage: GIVEN ON DAY 1, 4, 15, 18
     Route: 042
     Dates: start: 20070717, end: 20071019
  3. THALIDOMIDE [Suspect]
     Indication: MULTIPLE MYELOMA
     Route: 048
  4. COUMADIN [Concomitant]
     Route: 065
  5. TRICOR [Concomitant]
     Route: 065
  6. ACYCLOVIR [Concomitant]
     Route: 065
  7. PROSCAR [Concomitant]
     Route: 065
  8. NEXIUM [Concomitant]
     Route: 065
  9. BENICAR [Concomitant]
     Route: 065
  10. LOTREL [Concomitant]
     Route: 065
  11. TOPROL-XL [Concomitant]
     Route: 065

REACTIONS (4)
  - LEUKOPENIA [None]
  - LYMPHOPENIA [None]
  - PNEUMONIA [None]
  - PYREXIA [None]
